FAERS Safety Report 22520366 (Version 1)
Quarter: 2023Q2

REPORT INFORMATION
  Report Type: Spontaneous
  Country: JP (occurrence: JP)
  Receive Date: 20230605
  Receipt Date: 20230605
  Transmission Date: 20230721
  Serious: Yes (Hospitalization, Other)
  Sender: FDA-Public Use
  Company Number: JP-GLAXOSMITHKLINE-JP2023JPN076165

PATIENT

DRUGS (3)
  1. FLOLAN [Suspect]
     Active Substance: EPOPROSTENOL SODIUM
     Indication: Pulmonary arterial hypertension
     Dosage: UNK UNK, CO
     Route: 042
  2. TREPROSTINIL [Concomitant]
     Active Substance: TREPROSTINIL
     Indication: Pulmonary arterial hypertension
     Dosage: UNK
  3. HYDROCORTISONE [Concomitant]
     Active Substance: HYDROCORTISONE
     Dosage: UNK
     Route: 048

REACTIONS (10)
  - Adrenal insufficiency [Unknown]
  - Blood thyroid stimulating hormone decreased [Unknown]
  - Thyroxine decreased [Unknown]
  - Nausea [Unknown]
  - Headache [Unknown]
  - Hyperthyroidism [Unknown]
  - Hypopituitarism [Unknown]
  - Lymphocytic hypophysitis [Unknown]
  - Thyroiditis [Unknown]
  - Tri-iodothyronine decreased [Unknown]
